FAERS Safety Report 7906743-7 (Version None)
Quarter: 2011Q4

REPORT INFORMATION
  Report Type: 
  Country: None (occurrence: None)
  Receive Date: 20111109
  Receipt Date: 20111109
  Transmission Date: 20120403
  Serious: Yes (Hospitalization)
  Sender: FDA-Public Use
  Company Number: None

PATIENT
  Sex: Female
  Weight: 81.6475 kg

DRUGS (1)
  1. BONIVA [Suspect]
     Indication: OSTEOPOROSIS
     Dosage: 1 150MG ORAL FOR ABOUT 5 YEARS
     Route: 048

REACTIONS (3)
  - FALL [None]
  - PAIN IN EXTREMITY [None]
  - LOWER LIMB FRACTURE [None]
